FAERS Safety Report 8381872-5 (Version None)
Quarter: 2012Q2

REPORT INFORMATION
  Report Type: 
  Country: None (occurrence: None)
  Receive Date: 20120522
  Receipt Date: 20120522
  Transmission Date: 20120825
  Serious: Yes (Other)
  Sender: FDA-Public Use
  Company Number: None

PATIENT
  Age: 24 Year
  Sex: Male
  Weight: 63.5036 kg

DRUGS (1)
  1. PROPECIA [Suspect]
     Indication: ALOPECIA
     Dosage: 1 MG DAILY PO
     Route: 048
     Dates: start: 20090101, end: 20110415

REACTIONS (8)
  - APATHY [None]
  - MEMORY IMPAIRMENT [None]
  - EMOTIONAL DISORDER [None]
  - PENIS DISORDER [None]
  - NERVOUS SYSTEM DISORDER [None]
  - DEPRESSED MOOD [None]
  - INAPPROPRIATE AFFECT [None]
  - UNEVALUABLE EVENT [None]
